FAERS Safety Report 8486396-2 (Version None)
Quarter: 2012Q3

REPORT INFORMATION
  Report Type: 
  Country: None (occurrence: None)
  Receive Date: 20120703
  Receipt Date: 20120612
  Transmission Date: 20120928
  Serious: Yes (Other)
  Sender: FDA-Public Use
  Company Number: IT-GLAXOSMITHKLINE-B0811929A

PATIENT
  Sex: Male

DRUGS (6)
  1. AVODART [Suspect]
     Indication: BENIGN PROSTATIC HYPERPLASIA
     Dosage: .5MG PER DAY
     Route: 065
     Dates: start: 20051012, end: 20120120
  2. CRESTOR [Concomitant]
     Dosage: 20MG PER DAY
  3. LERCANIDIPINE [Concomitant]
     Dosage: 20MG PER DAY
  4. ZOFENOPRIL + HYDROCHLOROTHIAZIDE [Concomitant]
     Dosage: 1TAB PER DAY
  5. ASPIRIN [Concomitant]
     Dosage: 100MG PER DAY
  6. KANRENOL [Concomitant]
     Dosage: 50MG PER DAY

REACTIONS (4)
  - ERYTHEMA [None]
  - NAUSEA [None]
  - TACHYCARDIA [None]
  - HYPERTENSIVE CRISIS [None]
